FAERS Safety Report 5103528-4 (Version None)
Quarter: 2006Q3

REPORT INFORMATION
  Report Type: 
  Country: None (occurrence: None)
  Receive Date: 20060731
  Receipt Date: 20060110
  Transmission Date: 20061208
  Serious: Yes (Other)
  Sender: FDA-Public Use
  Company Number: US-JNJFOC-20051005213

PATIENT
  Age: 63 Year
  Sex: Male
  Weight: 90.7194 kg

DRUGS (4)
  1. RISPERDAL CONSTA [Suspect]
     Indication: CHEST PAIN
     Dosage: 25 MG, 1 IN 2 WEEK, INTRAMUSCULAR, SEE IMAGE
     Route: 030
     Dates: start: 20051001
  2. RISPERDAL CONSTA [Suspect]
     Indication: PHARYNGOLARYNGEAL PAIN
     Dosage: 25 MG, 1 IN 2 WEEK, INTRAMUSCULAR, SEE IMAGE
     Route: 030
     Dates: start: 20051001
  3. RISPERDAL CONSTA [Suspect]
     Indication: SCHIZOPHRENIA
     Dosage: 25 MG, 1 IN 2 WEEK, INTRAMUSCULAR, SEE IMAGE
     Route: 030
     Dates: start: 20051001
  4. NASACORT AQ [Concomitant]

REACTIONS (5)
  - BLOOD PROLACTIN INCREASED [None]
  - FEELING HOT [None]
  - HALLUCINATION, AUDITORY [None]
  - PHARYNGOLARYNGEAL PAIN [None]
  - SUICIDAL IDEATION [None]
